FAERS Safety Report 16247370 (Version 1)
Quarter: 2019Q2

REPORT INFORMATION
  Report Type: Report from Study
  Country: BR (occurrence: BR)
  Receive Date: 20190427
  Receipt Date: 20190427
  Transmission Date: 20190711
  Serious: Yes (Hospitalization)
  Sender: FDA-Public Use
  Company Number: BR-UCBSA-2019016602

PATIENT
  Sex: Male
  Weight: 86 kg

DRUGS (4)
  1. RISPERIDONA [Concomitant]
     Active Substance: RISPERIDONE
     Indication: PRODUCT USED FOR UNKNOWN INDICATION
     Dosage: 2 MILLIGRAM, 3X/DAY (TID)
     Route: 048
  2. LAMOTRIGINA [Concomitant]
     Active Substance: LAMOTRIGINE
     Indication: EPILEPSY
     Dosage: 100 MG, 3X/DAY (TID)
     Route: 048
  3. LEVETIRACETAM. [Suspect]
     Active Substance: LEVETIRACETAM
     Indication: EPILEPSY
     Dosage: 1 TABLET IN THE MORNING, 1 TABLET IN THE AFTERNOON AND 2 TABLETS IN THE EVENING, 3X/DAY (TID)
     Route: 048
     Dates: start: 2015
  4. CLOBAZAM. [Concomitant]
     Active Substance: CLOBAZAM
     Indication: EPILEPSY
     Dosage: 20 MG, 3X/DAY (TID)
     Route: 048

REACTIONS (2)
  - Off label use [Unknown]
  - Nephrolithiasis [Recovered/Resolved]

NARRATIVE: CASE EVENT DATE: 2015
